FAERS Safety Report 6160209-6 (Version None)
Quarter: 2009Q2

REPORT INFORMATION
  Report Type: 
  Country: None (occurrence: None)
  Receive Date: 20090420
  Receipt Date: 20090414
  Transmission Date: 20091009
  Serious: Yes (Hospitalization)
  Sender: FDA-Public Use
  Company Number: B0559483A

PATIENT
  Age: 77 Year
  Sex: Female

DRUGS (12)
  1. PAXIL [Suspect]
     Indication: DEPRESSION
     Dosage: 20MG PER DAY
     Route: 048
     Dates: start: 20080901, end: 20090126
  2. NAIXAN [Suspect]
     Indication: NASOPHARYNGITIS
     Dosage: 100MG THREE TIMES PER DAY
     Route: 048
     Dates: start: 20090119, end: 20090125
  3. FLUTIDE [Concomitant]
     Indication: ASTHMA
     Route: 055
  4. CRESTOR [Concomitant]
     Indication: ASTHMA
     Route: 048
  5. MAGNESIUM OXIDE [Concomitant]
     Indication: DRUG USE FOR UNKNOWN INDICATION
     Route: 048
  6. ALOSENN [Concomitant]
     Indication: DRUG USE FOR UNKNOWN INDICATION
     Route: 048
  7. MYSLEE [Concomitant]
     Indication: DRUG USE FOR UNKNOWN INDICATION
     Route: 048
  8. RACOL [Concomitant]
     Indication: DRUG USE FOR UNKNOWN INDICATION
     Route: 065
  9. SPIRIVA [Concomitant]
     Indication: ASTHMA
     Route: 055
  10. MEILAX [Concomitant]
     Indication: ANXIETY
     Route: 048
  11. DOGMATYL [Concomitant]
     Indication: ANOREXIA
     Route: 065
  12. DEPAS [Concomitant]
     Indication: ANXIETY
     Dosage: .5MG PER DAY
     Route: 048

REACTIONS (6)
  - ALANINE AMINOTRANSFERASE INCREASED [None]
  - C-REACTIVE PROTEIN INCREASED [None]
  - DIZZINESS [None]
  - GASTRIC HAEMORRHAGE [None]
  - GASTRIC ULCER HAEMORRHAGE [None]
  - MELAENA [None]
